FAERS Safety Report 9695865 (Version 2)
Quarter: 2014Q1

REPORT INFORMATION
  Report Type: Spontaneous
  Country: US (occurrence: US)
  Receive Date: 20131119
  Receipt Date: 20140328
  Transmission Date: 20141002
  Serious: No
  Sender: FDA-Public Use
  Company Number: US-B.I. PHARMACEUTICALS,INC./RIDGEFIELD-2013-BI-36942BP

PATIENT
  Sex: Female

DRUGS (1)
  1. COMBIVENT [Suspect]
     Indication: PRODUCT USED FOR UNKNOWN INDICATION
     Route: 055

REACTIONS (2)
  - Overdose [Unknown]
  - Product quality issue [Unknown]
